FAERS Safety Report 6626983-7 (Version None)
Quarter: 2010Q1

REPORT INFORMATION
  Report Type: 
  Country: None (occurrence: None)
  Receive Date: 20100311
  Receipt Date: 20100304
  Transmission Date: 20100710
  Serious: Yes (Hospitalization)
  Sender: FDA-Public Use
  Company Number: US-GENZYME-CERZ-1001137

PATIENT

DRUGS (1)
  1. CEREZYME [Suspect]
     Indication: GAUCHER'S DISEASE
     Dosage: 1200 U, Q2W
     Route: 042
     Dates: start: 20080314

REACTIONS (3)
  - DEVICE RELATED INFECTION [None]
  - PNEUMONIA [None]
  - PYREXIA [None]
